FAERS Safety Report 7784750-5 (Version None)
Quarter: 2011Q3

REPORT INFORMATION
  Report Type: 
  Country: None (occurrence: None)
  Receive Date: 20110928
  Receipt Date: 20110923
  Transmission Date: 20111222
  Serious: Yes (Other)
  Sender: FDA-Public Use
  Company Number: CHPA2011CA13045

PATIENT
  Sex: Female

DRUGS (4)
  1. EX-LAX REG STR LAX PILLS SENNA [Suspect]
     Indication: CONSTIPATION
     Dosage: 1 DF, Q4H
     Dates: start: 20110825, end: 20110831
  2. EX-LAX REG STR LAX PILLS SENNA [Suspect]
     Dosage: UNK, PRN
     Route: 048
     Dates: start: 19600101
  3. EX-LAX REG STR LAX PILLS SENNA [Suspect]
     Dosage: UNK, UNK
     Route: 048
     Dates: start: 19850101
  4. MILK OF MAGNESIA TAB [Suspect]
     Indication: CONSTIPATION

REACTIONS (7)
  - CATARACT [None]
  - FAECES HARD [None]
  - GASTRITIS EROSIVE [None]
  - HYPERSENSITIVITY [None]
  - DRUG INEFFECTIVE [None]
  - OVERDOSE [None]
  - CATARACT OPERATION [None]
